FAERS Safety Report 11148894 (Version 1)
Quarter: 2015Q2

REPORT INFORMATION
  Report Type: Spontaneous
  Country: FR (occurrence: None)
  Receive Date: 20150527
  Receipt Date: 20150527
  Transmission Date: 20150821
  Serious: Yes (Other)
  Sender: FDA-Public Use
  Company Number: 2015AMD00075

PATIENT
  Age: 5 Month

DRUGS (1)
  1. EPINEPHRINE (EPINEPHRINE) INJECTION [Suspect]
     Active Substance: EPINEPHRINE
     Dosage: OTHER

REACTIONS (3)
  - Infusion site extravasation [None]
  - Skin necrosis [None]
  - Peripheral ischaemia [None]
